FAERS Safety Report 15973565 (Version 5)
Quarter: 2020Q4

REPORT INFORMATION
  Report Type: Report from Study
  Country: US (occurrence: US)
  Receive Date: 20190216
  Receipt Date: 20201014
  Transmission Date: 20210113
  Serious: Yes (Hospitalization, Other)
  Sender: FDA-Public Use
  Company Number: US-TAKEDA-2019TUS004369

PATIENT
  Sex: Male

DRUGS (9)
  1. PONATINIB [Suspect]
     Active Substance: PONATINIB
     Dosage: 45 MILLIGRAM, QD
     Route: 048
     Dates: start: 20190207
  2. XANAX [Concomitant]
     Active Substance: ALPRAZOLAM
     Dosage: UNK
     Route: 065
  3. PONATINIB [Suspect]
     Active Substance: PONATINIB
     Dosage: 30 MILLIGRAM, QD
     Route: 048
  4. OXYCONTIN [Concomitant]
     Active Substance: OXYCODONE HYDROCHLORIDE
     Dosage: UNK
     Route: 065
  5. ONDANSETRON HCL [Concomitant]
     Active Substance: ONDANSETRON HYDROCHLORIDE
     Dosage: UNK
     Route: 065
  6. OXYCODONE [Concomitant]
     Active Substance: OXYCODONE
     Dosage: 30 MILLIGRAM
     Route: 065
  7. PONATINIB [Suspect]
     Active Substance: PONATINIB
     Dosage: 30 MILLIGRAM, QD
     Route: 065
     Dates: start: 20190129
  8. PONATINIB [Suspect]
     Active Substance: PONATINIB
     Dosage: 30 MILLIGRAM, QD
     Route: 048
  9. PONATINIB [Suspect]
     Active Substance: PONATINIB
     Indication: CHRONIC MYELOID LEUKAEMIA
     Dosage: 45 MILLIGRAM, QD
     Route: 048
     Dates: start: 20190120

REACTIONS (22)
  - Philadelphia chromosome positive [Unknown]
  - Gingival bleeding [Unknown]
  - Contraindication to medical treatment [Unknown]
  - Gingival pain [Unknown]
  - Rash papular [Not Recovered/Not Resolved]
  - Pyrexia [Unknown]
  - Dysuria [Unknown]
  - White blood cell count increased [Unknown]
  - Gingival swelling [Unknown]
  - Abdominal pain [Unknown]
  - Bladder pain [Unknown]
  - Gingivitis [Unknown]
  - Splenic rupture [Unknown]
  - Spinal pain [Unknown]
  - Lipase increased [Unknown]
  - Erythema [Unknown]
  - Headache [Unknown]
  - Vomiting [Unknown]
  - Extrasystoles [Unknown]
  - Alopecia [Unknown]
  - Penile burning sensation [Unknown]
  - Illness [Unknown]
